FAERS Safety Report 5819712-8 (Version None)
Quarter: 2008Q3

REPORT INFORMATION
  Report Type: 
  Country: None (occurrence: None)
  Receive Date: 20080718
  Receipt Date: 20080703
  Transmission Date: 20090109
  Serious: Yes (Hospitalization, Disabling, Other)
  Sender: FDA-Public Use
  Company Number: VNL_01168_2008

PATIENT
  Sex: Male

DRUGS (4)
  1. APO-GO (APO-GO - APORMORPHINE HYDROCHLORIDE) (NOT SPECIFIED) [Suspect]
     Indication: PARKINSON'S DISEASE
     Dosage: SEE IMAGE
     Route: 058
     Dates: start: 20080227, end: 20080515
  2. APO-GO (APO-GO - APORMORPHINE HYDROCHLORIDE) (NOT SPECIFIED) [Suspect]
     Indication: PARKINSON'S DISEASE
     Dosage: (DF FOR 4 WEEKS 6 DAYS SUBCUTANEOUS)
     Route: 058
     Dates: start: 20080515, end: 20080617
  3. PRAMIPEXOLE DIHYDROCHLORIDE [Suspect]
     Indication: PARKINSON'S DISEASE
     Dosage: (4.5 MG QD ORAL)
     Route: 048
     Dates: start: 20070301, end: 20080301
  4. SINEMET [Concomitant]

REACTIONS (4)
  - IMMOBILE [None]
  - OEDEMA PERIPHERAL [None]
  - PULMONARY EMBOLISM [None]
  - SKIN NODULE [None]
